FAERS Safety Report 5379390-1 (Version None)
Quarter: 2007Q3

REPORT INFORMATION
  Report Type: 
  Country: None (occurrence: None)
  Receive Date: 20070705
  Receipt Date: 20070621
  Transmission Date: 20080115
  Serious: Yes (Hospitalization)
  Sender: FDA-Public Use
  Company Number: DE-GENENTECH-243065

PATIENT
  Sex: Male

DRUGS (4)
  1. AVASTIN [Suspect]
     Indication: COLON CANCER METASTATIC
  2. FLUOROURACIL [Concomitant]
     Indication: COLON CANCER METASTATIC
  3. FOLINIC ACID [Concomitant]
     Indication: COLON CANCER METASTATIC
  4. IRINOTECAN HCL [Concomitant]
     Indication: COLON CANCER METASTATIC

REACTIONS (1)
  - SPINAL CORD ISCHAEMIA [None]
